FAERS Safety Report 11717402 (Version 3)
Quarter: 2017Q2

REPORT INFORMATION
  Report Type: Spontaneous
  Country: FI (occurrence: FI)
  Receive Date: 20151110
  Receipt Date: 20170511
  Transmission Date: 20170829
  Serious: Yes (Other)
  Sender: FDA-Public Use
  Company Number: FI-AMGEN-FINSP2015117959

PATIENT
  Age: 67 Year
  Sex: Male

DRUGS (11)
  1. NITROSID [Concomitant]
     Dosage: UNK
  2. FOLIVER [Concomitant]
     Dosage: UNK
  3. TREXAN [Suspect]
     Active Substance: METHOTREXATE SODIUM
     Indication: ARTHRITIS
     Dosage: 15-25 MG, WEEKLY
     Route: 048
     Dates: start: 200307
  4. HUMALOG [Concomitant]
     Active Substance: INSULIN LISPRO
     Dosage: UNK
  5. AVODART [Concomitant]
     Active Substance: DUTASTERIDE
     Dosage: UNK
  6. VITAMIN D [Concomitant]
     Active Substance: CHOLECALCIFEROL
     Dosage: UNK
  7. EMCONCOR [Concomitant]
     Active Substance: BISOPROLOL FUMARATE
     Dosage: UNK
  8. ATORVASTATIN [Concomitant]
     Active Substance: ATORVASTATIN
     Dosage: UNK
  9. LEVEMIR [Concomitant]
     Active Substance: INSULIN DETEMIR
     Dosage: UNK
  10. ENBREL [Suspect]
     Active Substance: ETANERCEPT
     Indication: ARTHRITIS
     Dosage: 50 MG, WEEKLY
     Route: 058
     Dates: start: 20030711, end: 20150909
  11. ARCOXIA [Concomitant]
     Active Substance: ETORICOXIB
     Dosage: UNK

REACTIONS (2)
  - Arthralgia [Unknown]
  - Superficial spreading melanoma stage II [Recovered/Resolved]

NARRATIVE: CASE EVENT DATE: 201508
